FAERS Safety Report 7487376-6 (Version None)
Quarter: 2011Q2

REPORT INFORMATION
  Report Type: 
  Country: None (occurrence: None)
  Receive Date: 20110518
  Receipt Date: 20110505
  Transmission Date: 20111010
  Serious: Yes (Hospitalization)
  Sender: FDA-Public Use
  Company Number: ES-JNJFOC-20110503366

PATIENT
  Age: 69 Year
  Sex: Male

DRUGS (3)
  1. DURAGESIC-100 [Suspect]
     Indication: RECTAL CANCER
     Route: 062
  2. SEVREDOL [Concomitant]
     Indication: RECTAL CANCER
     Route: 065
     Dates: start: 20100324
  3. DURAGESIC-100 [Suspect]
     Route: 062
     Dates: start: 20100623

REACTIONS (1)
  - INTESTINAL OBSTRUCTION [None]
